FAERS Safety Report 21848952 (Version 1)
Quarter: 2023Q1

REPORT INFORMATION
  Report Type: Spontaneous
  Country: GR (occurrence: GR)
  Receive Date: 20230111
  Receipt Date: 20230111
  Transmission Date: 20230417
  Serious: Yes (Hospitalization)
  Sender: FDA-Public Use
  Company Number: GR-EMA-DD-20230104-216281-114550

PATIENT

DRUGS (45)
  1. VALTREX [Suspect]
     Active Substance: VALACYCLOVIR HYDROCHLORIDE
     Indication: Non-Hodgkin^s lymphoma
     Dosage: UNK
     Route: 065
  2. VALTREX [Suspect]
     Active Substance: VALACYCLOVIR HYDROCHLORIDE
     Indication: Hypertension
  3. VALTREX [Suspect]
     Active Substance: VALACYCLOVIR HYDROCHLORIDE
     Indication: Leukopenia
  4. VALTREX [Suspect]
     Active Substance: VALACYCLOVIR HYDROCHLORIDE
     Indication: Diffuse large B-cell lymphoma
  5. VALTREX [Suspect]
     Active Substance: VALACYCLOVIR HYDROCHLORIDE
     Indication: Anaemia
  6. MABTHERA [Suspect]
     Active Substance: RITUXIMAB
     Indication: Leukopenia
     Dosage: UNK
     Route: 065
  7. MABTHERA [Suspect]
     Active Substance: RITUXIMAB
     Indication: Hypertension
  8. MABTHERA [Suspect]
     Active Substance: RITUXIMAB
     Indication: Diffuse large B-cell lymphoma
  9. MABTHERA [Suspect]
     Active Substance: RITUXIMAB
     Indication: Anaemia
  10. MABTHERA [Suspect]
     Active Substance: RITUXIMAB
     Indication: Non-Hodgkin^s lymphoma
  11. NORVASC [Suspect]
     Active Substance: AMLODIPINE BESYLATE
     Indication: Leukopenia
     Dosage: UNK
     Route: 065
  12. NORVASC [Suspect]
     Active Substance: AMLODIPINE BESYLATE
     Indication: Non-Hodgkin^s lymphoma
  13. NORVASC [Suspect]
     Active Substance: AMLODIPINE BESYLATE
     Indication: Diffuse large B-cell lymphoma
  14. NORVASC [Suspect]
     Active Substance: AMLODIPINE BESYLATE
     Indication: Anaemia
  15. NORVASC [Suspect]
     Active Substance: AMLODIPINE BESYLATE
     Indication: Hypertension
  16. ALDACTONE [Suspect]
     Active Substance: SPIRONOLACTONE
     Indication: Hypertension
     Dosage: UNK
     Route: 065
  17. ALDACTONE [Suspect]
     Active Substance: SPIRONOLACTONE
     Indication: Anaemia
  18. ALDACTONE [Suspect]
     Active Substance: SPIRONOLACTONE
     Indication: Non-Hodgkin^s lymphoma
  19. ALDACTONE [Suspect]
     Active Substance: SPIRONOLACTONE
     Indication: Diffuse large B-cell lymphoma
  20. ALDACTONE [Suspect]
     Active Substance: SPIRONOLACTONE
     Indication: Leukopenia
  21. CANCIDAS [Suspect]
     Active Substance: CASPOFUNGIN ACETATE
     Indication: Diffuse large B-cell lymphoma
     Dosage: UNK
     Route: 065
  22. CANCIDAS [Suspect]
     Active Substance: CASPOFUNGIN ACETATE
     Indication: Non-Hodgkin^s lymphoma
  23. CANCIDAS [Suspect]
     Active Substance: CASPOFUNGIN ACETATE
     Indication: Hypertension
  24. CANCIDAS [Suspect]
     Active Substance: CASPOFUNGIN ACETATE
     Indication: Leukopenia
  25. CANCIDAS [Suspect]
     Active Substance: CASPOFUNGIN ACETATE
     Indication: Anaemia
  26. LASIX [Suspect]
     Active Substance: FUROSEMIDE
     Indication: Diffuse large B-cell lymphoma
     Dosage: UNK
     Route: 065
  27. LASIX [Suspect]
     Active Substance: FUROSEMIDE
     Indication: Non-Hodgkin^s lymphoma
  28. LASIX [Suspect]
     Active Substance: FUROSEMIDE
     Indication: Anaemia
  29. LASIX [Suspect]
     Active Substance: FUROSEMIDE
     Indication: Hypertension
  30. LASIX [Suspect]
     Active Substance: FUROSEMIDE
     Indication: Leukopenia
  31. VEPESID [Suspect]
     Active Substance: ETOPOSIDE
     Indication: Diffuse large B-cell lymphoma
     Dosage: UNK
     Route: 065
  32. VEPESID [Suspect]
     Active Substance: ETOPOSIDE
     Indication: Leukopenia
  33. VEPESID [Suspect]
     Active Substance: ETOPOSIDE
     Indication: Non-Hodgkin^s lymphoma
  34. VEPESID [Suspect]
     Active Substance: ETOPOSIDE
     Indication: Anaemia
  35. VEPESID [Suspect]
     Active Substance: ETOPOSIDE
     Indication: Hypertension
  36. CUBICIN [Suspect]
     Active Substance: DAPTOMYCIN
     Indication: Anaemia
     Dosage: UNK
     Route: 065
  37. CUBICIN [Suspect]
     Active Substance: DAPTOMYCIN
     Indication: Non-Hodgkin^s lymphoma
  38. CUBICIN [Suspect]
     Active Substance: DAPTOMYCIN
     Indication: Leukopenia
  39. CUBICIN [Suspect]
     Active Substance: DAPTOMYCIN
     Indication: Hypertension
  40. CUBICIN [Suspect]
     Active Substance: DAPTOMYCIN
     Indication: Diffuse large B-cell lymphoma
  41. LOSEC [Suspect]
     Active Substance: OMEPRAZOLE
     Indication: Non-Hodgkin^s lymphoma
     Dosage: UNK
     Route: 065
  42. LOSEC [Suspect]
     Active Substance: OMEPRAZOLE
     Indication: Hypertension
  43. LOSEC [Suspect]
     Active Substance: OMEPRAZOLE
     Indication: Leukopenia
  44. LOSEC [Suspect]
     Active Substance: OMEPRAZOLE
     Indication: Anaemia
  45. LOSEC [Suspect]
     Active Substance: OMEPRAZOLE
     Indication: Diffuse large B-cell lymphoma

REACTIONS (2)
  - Neoplasm progression [Unknown]
  - Off label use [Unknown]
